FAERS Safety Report 15793853 (Version 2)
Quarter: 2019Q2

REPORT INFORMATION
  Report Type: Spontaneous
  Country: US (occurrence: US)
  Receive Date: 20190107
  Receipt Date: 20190520
  Transmission Date: 20190711
  Serious: No
  Sender: FDA-Public Use
  Company Number: US-009507513-1901USA001354

PATIENT
  Sex: Female

DRUGS (1)
  1. MK-0000 [Suspect]
     Active Substance: INVESTIGATIONAL PRODUCT
     Dosage: UNK

REACTIONS (5)
  - Malaise [Unknown]
  - Nervousness [Unknown]
  - Polyuria [Unknown]
  - Product use issue [Unknown]
  - Asthenia [Unknown]
